FAERS Safety Report 6543884-3 (Version None)
Quarter: 2010Q1

REPORT INFORMATION
  Report Type: 
  Country: None (occurrence: None)
  Receive Date: 20100119
  Receipt Date: 20100119
  Transmission Date: 20100710
  Serious: Yes (Other)
  Sender: FDA-Public Use
  Company Number: None

PATIENT
  Age: 50 Year
  Sex: Female
  Weight: 67.1324 kg

DRUGS (2)
  1. MOTRIN [Suspect]
     Indication: DIARRHOEA
     Dosage: 1 DAILY
     Dates: start: 20091201, end: 20100115
  2. MOTRIN [Suspect]
     Indication: NAUSEA
     Dosage: 1 DAILY
     Dates: start: 20091201, end: 20100115

REACTIONS (2)
  - DIARRHOEA [None]
  - NAUSEA [None]
